FAERS Safety Report 4396865-2 (Version None)
Quarter: 2004Q3

REPORT INFORMATION
  Report Type: 
  Country: None (occurrence: None)
  Receive Date: 20040713
  Receipt Date: 20040713
  Transmission Date: 20050211
  Serious: Yes (Life-Threatening, Hospitalization, Disabling)
  Sender: FDA-Public Use
  Company Number: None

PATIENT
  Age: 13 Year
  Sex: Female
  Weight: 68.0396 kg

DRUGS (4)
  1. NEURONTIN [Suspect]
     Dosage: GENERIC NEURONTIN PILLS
  2. LITHIUM [Suspect]
     Dosage: LITHIUM PILLS
  3. HALDOL [Suspect]
     Dosage: HALDOL DEC SHOT
  4. RISPERDAL [Suspect]
     Dosage: RESPRIDAL PILLS

REACTIONS (7)
  - ABORTION [None]
  - ADOPTION [None]
  - CONGENITAL ANOMALY [None]
  - DRUG EXPOSURE DURING PREGNANCY [None]
  - INJURY [None]
  - PREGNANCY [None]
  - ROAD TRAFFIC ACCIDENT [None]
